FAERS Safety Report 16763686 (Version 1)
Quarter: 2019Q3

REPORT INFORMATION
  Report Type: Spontaneous
  Country: CA (occurrence: CA)
  Receive Date: 20190902
  Receipt Date: 20190902
  Transmission Date: 20191005
  Serious: Yes (Life-Threatening, Other)
  Sender: FDA-Public Use
  Company Number: CA-GLAXOSMITHKLINE-CA2019GSK156130

PATIENT
  Age: 53 Year
  Sex: Male

DRUGS (1)
  1. ACITRETIN. [Suspect]
     Active Substance: ACITRETIN
     Indication: PITYRIASIS RUBRA PILARIS
     Dosage: 20 MG, QD

REACTIONS (12)
  - Oliguria [Recovered/Resolved]
  - Pericardial effusion [Recovered/Resolved]
  - Blood creatinine increased [Recovered/Resolved]
  - Capillary leak syndrome [Recovered/Resolved]
  - Pyrexia [Recovered/Resolved]
  - Dyspnoea [Recovered/Resolved]
  - Atelectasis [Recovered/Resolved]
  - Hypoalbuminaemia [Recovered/Resolved]
  - Differentiation syndrome [Recovered/Resolved]
  - Oedema [Recovered/Resolved]
  - Myalgia [Recovered/Resolved]
  - Neutrophilia [Recovered/Resolved]
